FAERS Safety Report 21259787 (Version 1)
Quarter: 2022Q3

REPORT INFORMATION
  Report Type: Spontaneous
  Country: SE (occurrence: SE)
  Receive Date: 20220826
  Receipt Date: 20220826
  Transmission Date: 20221027
  Serious: Yes (Other)
  Sender: FDA-Public Use
  Company Number: SE-TEVA-2022-SE-2067087

PATIENT
  Age: 61 Year
  Sex: Male

DRUGS (1)
  1. OXYCODONE HYDROCHLORIDE [Suspect]
     Active Substance: OXYCODONE HYDROCHLORIDE
     Indication: Intervertebral disc protrusion
     Dosage: MAXIMUM 3 TIMES A DAY (WHEN NEEDED)
     Route: 048
     Dates: start: 202206

REACTIONS (2)
  - Choking [Unknown]
  - Product use complaint [Unknown]

NARRATIVE: CASE EVENT DATE: 20220101
